FAERS Safety Report 7632950-7 (Version None)
Quarter: 2011Q3

REPORT INFORMATION
  Report Type: 
  Country: None (occurrence: None)
  Receive Date: 20110725
  Receipt Date: 20110721
  Transmission Date: 20111222
  Serious: Yes (Hospitalization)
  Sender: FDA-Public Use
  Company Number: AU-SANOFI-AVENTIS-2011SA046250

PATIENT
  Age: 75 Year
  Sex: Male

DRUGS (5)
  1. ACETAMINOPHEN [Concomitant]
  2. ZINC [Concomitant]
  3. FISH OIL [Concomitant]
  4. PLAVIX [Suspect]
     Route: 065
  5. GLUCOSAMINE [Concomitant]

REACTIONS (2)
  - HEADACHE [None]
  - BLOOD PRESSURE INCREASED [None]
